FAERS Safety Report 9194222 (Version 1)
Quarter: 2013Q1

REPORT INFORMATION
  Report Type: Spontaneous
  Country: US (occurrence: US)
  Receive Date: 20130327
  Receipt Date: 20130327
  Transmission Date: 20140127
  Serious: Yes (Other)
  Sender: FDA-Public Use
  Company Number: US-ROXANE LABORATORIES, INC.-2013-RO-00425RO

PATIENT
  Age: 75 Year
  Sex: Male

DRUGS (2)
  1. PREDNISONE [Suspect]
     Indication: GASTROOESOPHAGEAL REFLUX DISEASE
     Route: 048
     Dates: start: 20110929
  2. VICTOZA [Concomitant]
     Indication: DIABETES MELLITUS

REACTIONS (4)
  - Transient ischaemic attack [Recovered/Resolved]
  - Blood glucose increased [Recovered/Resolved]
  - Herpes zoster [Not Recovered/Not Resolved]
  - Gastrooesophageal reflux disease [Recovered/Resolved]
